FAERS Safety Report 14617684 (Version 2)
Quarter: 2018Q2

REPORT INFORMATION
  Report Type: Spontaneous
  Country: IT (occurrence: IT)
  Receive Date: 20180309
  Receipt Date: 20180518
  Transmission Date: 20180711
  Serious: Yes (Death, Other)
  Sender: FDA-Public Use
  Company Number: IT-AMGEN-ITASP2018031246

PATIENT
  Age: 25 Year
  Sex: Male

DRUGS (4)
  1. DASATINIB. [Concomitant]
     Active Substance: DASATINIB
  2. PONATINIB [Concomitant]
     Active Substance: PONATINIB
  3. BLINCYTO [Suspect]
     Active Substance: BLINATUMOMAB
     Indication: ACUTE LYMPHOCYTIC LEUKAEMIA
     Dosage: UNK
     Route: 065
     Dates: start: 201610
  4. INOTUZUMAB [Concomitant]
     Active Substance: INOTUZUMAB OZOGAMICIN

REACTIONS (10)
  - Klebsiella infection [Unknown]
  - Papilloma viral infection [Unknown]
  - Pneumonia viral [Unknown]
  - Sepsis [Unknown]
  - Pyelonephritis viral [Unknown]
  - Osteomyelitis bacterial [Unknown]
  - Hepatic infection bacterial [Unknown]
  - Acute lymphocytic leukaemia refractory [Fatal]
  - Mycoplasma infection [Unknown]
  - Herpes simplex [Unknown]

NARRATIVE: CASE EVENT DATE: 201702
